FAERS Safety Report 24042178 (Version 1)
Quarter: 2024Q3

REPORT INFORMATION
  Report Type: Report from Study
  Country: US (occurrence: None)
  Receive Date: 20240702
  Receipt Date: 20240702
  Transmission Date: 20241017
  Serious: Yes (Death, Other)
  Sender: ASTRAZENECA
  Company Number: 2024A149769

PATIENT
  Sex: Female

DRUGS (23)
  1. FASENRA [Suspect]
     Active Substance: BENRALIZUMAB
     Indication: Asthma
     Dosage: 30MG, 1 PEN SUBCUTANEOUSLY AT WEEK 8 THEN EVERY 8 WEEK THEREAFTER30MG/ML
     Route: 058
     Dates: start: 20230101
  2. BREZTRI [Suspect]
     Active Substance: BUDESONIDE\FORMOTEROL\GLYCOPYRROLATE
     Dosage: 160-9-4
     Route: 055
  3. ALBUTEROL [Concomitant]
     Active Substance: ALBUTEROL
     Dosage: 108, SU NEB 1.25 MG/
  4. AMITRIPTYLINE [Concomitant]
     Active Substance: AMITRIPTYLINE
  5. ALISKIREN HEMIFUMARATE AND AMLODIPINE BESYLATE AND HYDROCHLOROTHIAZIDE [Concomitant]
     Active Substance: ALISKIREN HEMIFUMARATE\AMLODIPINE BESYLATE\HYDROCHLOROTHIAZIDE
  6. ALISKIREN HEMIFUMARATE AND AMLODIPINE BESYLATE AND HYDROCHLOROTHIAZIDE [Concomitant]
     Active Substance: ALISKIREN HEMIFUMARATE\AMLODIPINE BESYLATE\HYDROCHLOROTHIAZIDE
  7. ASPIRIN [Concomitant]
     Active Substance: ASPIRIN
  8. ATORVASTATIN [Concomitant]
     Active Substance: ATORVASTATIN
  9. CETIRIZINE HYDROCHLORIDE [Concomitant]
     Active Substance: CETIRIZINE HYDROCHLORIDE
  10. CITALOPRAM [Concomitant]
     Active Substance: CITALOPRAM\CITALOPRAM HYDROBROMIDE
  11. FLUTICASONE [Concomitant]
     Active Substance: FLUTICASONE
     Dosage: 50 MCG/AC
  12. FUROSEMIDE [Concomitant]
     Active Substance: FUROSEMIDE
  13. HYDRALAZINE [Concomitant]
     Active Substance: HYDRALAZINE HYDROCHLORIDE
  14. LISINOPRIL [Concomitant]
     Active Substance: LISINOPRIL
  15. LORATADINE [Concomitant]
     Active Substance: LORATADINE
  16. MELATONIN [Concomitant]
     Active Substance: MELATONIN
  17. MELOXICAM [Concomitant]
     Active Substance: MELOXICAM
  18. METFORMIN [Concomitant]
     Active Substance: METFORMIN HYDROCHLORIDE
  19. METOPROLOL [Concomitant]
     Active Substance: METOPROLOL
     Dosage: TB2
  20. MONTELUKAST [Concomitant]
     Active Substance: MONTELUKAST SODIUM
     Dosage: 108, SU NEB 1.25 MG/
  21. NYSTATIN [Concomitant]
     Active Substance: NYSTATIN
     Dosage: 500000 UNIT
  22. PANTOPRAZOLE [Concomitant]
     Active Substance: PANTOPRAZOLE
  23. SERTRALINE [Concomitant]
     Active Substance: SERTRALINE HYDROCHLORIDE

REACTIONS (1)
  - Death [Fatal]
